FAERS Safety Report 7179297-3 (Version None)
Quarter: 2010Q4

REPORT INFORMATION
  Report Type: 
  Country: None (occurrence: None)
  Receive Date: 20101217
  Receipt Date: 20101217
  Transmission Date: 20110411
  Serious: No
  Sender: FDA-Public Use
  Company Number: None

PATIENT

DRUGS (1)
  1. HEPARIN SODIUM 1,000 UNITS IN DEXTROSE 5% [Suspect]
     Indication: THROMBOSIS
     Dosage: 1175 UNITS PER HOUR IV
     Route: 042
     Dates: start: 20101118, end: 20101124

REACTIONS (2)
  - ANTICOAGULATION DRUG LEVEL BELOW THERAPEUTIC [None]
  - INCORRECT DOSE ADMINISTERED [None]
